FAERS Safety Report 14248438 (Version 1)
Quarter: 2017Q4

REPORT INFORMATION
  Report Type: Spontaneous
  Country: US (occurrence: None)
  Receive Date: 20171203
  Receipt Date: 20171203
  Transmission Date: 20180321
  Serious: Yes (Death)
  Sender: FDA-Public Use
  Company Number: None

PATIENT
  Age: 71 Year
  Sex: Male
  Weight: 65.6 kg

DRUGS (2)
  1. LEUPROLIDE ACETATE. [Suspect]
     Active Substance: LEUPROLIDE ACETATE
     Dates: end: 20170814
  2. CASODEX [Suspect]
     Active Substance: BICALUTAMIDE
     Dates: end: 20171027

REACTIONS (1)
  - Accident [None]

NARRATIVE: CASE EVENT DATE: 20171028
